FAERS Safety Report 17917124 (Version 1)
Quarter: 2020Q2

REPORT INFORMATION
  Report Type: Spontaneous
  Country: FR (occurrence: FR)
  Receive Date: 20200619
  Receipt Date: 20200619
  Transmission Date: 20200714
  Serious: Yes (Hospitalization)
  Sender: FDA-Public Use
  Company Number: FR-PFIZER INC-2020238734

PATIENT
  Age: 17 Year
  Sex: Female
  Weight: 52 kg

DRUGS (4)
  1. SERTRALINE HCL [Suspect]
     Active Substance: SERTRALINE HYDROCHLORIDE
     Indication: DEPRESSION
     Dosage: 75 MG, 1X/DAY
     Route: 048
     Dates: start: 202004
  2. TERCIAN [CYAMEMAZINE TARTRATE] [Suspect]
     Active Substance: CYAMEMAZINE
     Dosage: UNK (15MG-15MG-20MG)
     Route: 048
  3. ARIPIPRAZOLE. [Suspect]
     Active Substance: ARIPIPRAZOLE
     Indication: DEPRESSION
     Dosage: 10 MG, 1X/DAY
     Route: 048
  4. FORLAX [Concomitant]
     Active Substance: POLYETHYLENE GLYCOL 4000
     Dosage: 1 DF, 1X/DAY
     Route: 048

REACTIONS (1)
  - Urinary retention [Recovering/Resolving]

NARRATIVE: CASE EVENT DATE: 20200510
